FAERS Safety Report 17397272 (Version 2)
Quarter: 2020Q1

REPORT INFORMATION
  Report Type: Spontaneous
  Country: JP (occurrence: JP)
  Receive Date: 20200210
  Receipt Date: 20200317
  Transmission Date: 20200409
  Serious: Yes (Other)
  Sender: FDA-Public Use
  Company Number: JP-BIOGEN-2019BI00819950

PATIENT
  Age: 47 Year
  Sex: Male

DRUGS (5)
  1. AVONEX [Suspect]
     Active Substance: INTERFERON BETA-1A
  2. MUCOSTA [Concomitant]
     Active Substance: REBAMIPIDE
     Route: 065
  3. AVONEX [Suspect]
     Active Substance: INTERFERON BETA-1A
  4. AVONEX [Suspect]
     Active Substance: INTERFERON BETA-1A
     Indication: SECONDARY PROGRESSIVE MULTIPLE SCLEROSIS
     Route: 065
     Dates: start: 2012
  5. AVONEX [Suspect]
     Active Substance: INTERFERON BETA-1A

REACTIONS (5)
  - Brain neoplasm [Unknown]
  - Pneumonia [Unknown]
  - Infection [Unknown]
  - Pyrexia [Unknown]
  - Neuritic plaques [Unknown]

NARRATIVE: CASE EVENT DATE: 2019
